FAERS Safety Report 11769408 (Version 1)
Quarter: 2015Q4

REPORT INFORMATION
  Report Type: Report from Study
  Country: BR (occurrence: BR)
  Receive Date: 20151123
  Receipt Date: 20151123
  Transmission Date: 20160304
  Serious: Yes (Hospitalization, Other)
  Sender: FDA-Public Use
  Company Number: ALCN2015BR007122

PATIENT
  Age: 62 Year
  Sex: Female
  Weight: 75 kg

DRUGS (1)
  1. AZORGA [Suspect]
     Active Substance: BRINZOLAMIDE\TIMOLOL MALEATE
     Indication: GLAUCOMA
     Dosage: 1 GTT, Q12H
     Route: 047
     Dates: start: 201507

REACTIONS (10)
  - Hypoacusis [Unknown]
  - Labyrinthitis [Unknown]
  - Dizziness [Unknown]
  - Vomiting [Unknown]
  - Bedridden [Unknown]
  - Ear haemorrhage [Unknown]
  - Influenza [Unknown]
  - Otorrhoea [Unknown]
  - Hemiparesis [Unknown]
  - Gait disturbance [Unknown]

NARRATIVE: CASE EVENT DATE: 20151004
